FAERS Safety Report 16727604 (Version 1)
Quarter: 2019Q3

REPORT INFORMATION
  Report Type: Spontaneous
  Country: GB (occurrence: GB)
  Receive Date: 20190822
  Receipt Date: 20190822
  Transmission Date: 20191005
  Serious: Yes (Hospitalization, Other)
  Sender: FDA-Public Use
  Company Number: GB-TEVA-764497ACC

PATIENT
  Age: 30 Year
  Sex: Female

DRUGS (9)
  1. CELSENTRI / MARAVIROC [Suspect]
     Active Substance: MARAVIROC
     Indication: HIV INFECTION
     Dosage: 600 MILLIGRAM DAILY;
     Dates: start: 201412
  2. RITONAVIR. [Suspect]
     Active Substance: RITONAVIR
     Indication: HIV INFECTION
     Dosage: UNK
     Dates: start: 201410, end: 201411
  3. LAMIVUDINE. [Suspect]
     Active Substance: LAMIVUDINE
     Indication: HIV INFECTION
     Dosage: UNK
     Dates: start: 201407
  4. TENOFOVIR DISOPROXIL FUMARATE. [Suspect]
     Active Substance: TENOFOVIR DISOPROXIL FUMARATE
     Dosage: UNK
     Dates: start: 201404
  5. ABACAVIR SULFATE. [Suspect]
     Active Substance: ABACAVIR SULFATE
     Indication: HIV INFECTION
     Dosage: UNK
     Dates: start: 201407
  6. ISENTRESS [Suspect]
     Active Substance: RALTEGRAVIR POTASSIUM
     Indication: HIV INFECTION
     Dosage: UNK
     Dates: start: 201411, end: 201412
  7. EMTRIVA [Suspect]
     Active Substance: EMTRICITABINE
     Dosage: UNK
     Dates: start: 201404
  8. TIVICAY [Suspect]
     Active Substance: DOLUTEGRAVIR SODIUM
     Indication: HIV INFECTION
     Dosage: UNK
     Dates: start: 201407, end: 201410
  9. PREZISTA [Suspect]
     Active Substance: DARUNAVIR ETHANOLATE
     Dosage: UNK
     Dates: start: 201404

REACTIONS (11)
  - Hyperbilirubinaemia [Unknown]
  - Maternal exposure during pregnancy [Unknown]
  - Panic attack [Unknown]
  - Rash generalised [Unknown]
  - Social avoidant behaviour [Unknown]
  - Rash maculo-papular [Unknown]
  - Palpitations [Unknown]
  - Anxiety [Unknown]
  - Dermatitis exfoliative generalised [Unknown]
  - Generalised anxiety disorder [Unknown]
  - Live birth [Unknown]

NARRATIVE: CASE EVENT DATE: 2014
